FAERS Safety Report 19635638 (Version 1)
Quarter: 2021Q3

REPORT INFORMATION
  Report Type: Spontaneous
  Country: US (occurrence: US)
  Receive Date: 20210730
  Receipt Date: 20210730
  Transmission Date: 20211014
  Serious: No
  Sender: FDA-Public Use
  Company Number: US-STRIDES ARCOLAB LIMITED-2021SP001295

PATIENT
  Sex: Male

DRUGS (1)
  1. MYCOPHENOLATE MOFETIL. [Suspect]
     Active Substance: MYCOPHENOLATE MOFETIL
     Indication: NOCARDIOSIS
     Dosage: UNK
     Route: 065
     Dates: start: 2013

REACTIONS (3)
  - Nausea [Unknown]
  - Vomiting [Unknown]
  - Off label use [Unknown]
